FAERS Safety Report 11807347 (Version 1)
Quarter: 2015Q4

REPORT INFORMATION
  Report Type: Spontaneous
  Country: JP (occurrence: JP)
  Receive Date: 20151207
  Receipt Date: 20151207
  Transmission Date: 20160305
  Serious: Yes (Other)
  Sender: FDA-Public Use
  Company Number: 2015-002861

PATIENT
  Age: 71 Year
  Sex: Female

DRUGS (14)
  1. OPALMON [Concomitant]
     Active Substance: LIMAPROST
  2. VITAMIN D AND ANALOGUES [Concomitant]
     Active Substance: CHOLECALCIFEROL
  3. SHAKUYAKUKANZOTO [Concomitant]
     Active Substance: HERBALS
  4. NEUROTROPIN [Concomitant]
     Active Substance: NEUROTROPIN
  5. METFORMIN HYDROCHLORIDE. [Concomitant]
     Active Substance: METFORMIN HYDROCHLORIDE
  6. EVISTA [Concomitant]
     Active Substance: RALOXIFENE HYDROCHLORIDE
  7. CELECOX [Concomitant]
     Active Substance: CELECOXIB
  8. NOVORAPID [Concomitant]
     Active Substance: INSULIN ASPART
  9. METHYCOBAL [Concomitant]
     Active Substance: METHYLCOBALAMIN
  10. ACTONEL [Suspect]
     Active Substance: RISEDRONATE SODIUM
     Indication: OSTEOPOROSIS
     Route: 048
     Dates: start: 20151021, end: 20151021
  11. INSULIN [Concomitant]
     Active Substance: INSULIN NOS
  12. SELBEX [Concomitant]
     Active Substance: TEPRENONE
  13. EPALRESTAT [Concomitant]
     Active Substance: EPALRESTAT
  14. RENIVACE [Concomitant]
     Active Substance: ENALAPRIL

REACTIONS (1)
  - Blood glucose increased [Recovered/Resolved]

NARRATIVE: CASE EVENT DATE: 20151021
